FAERS Safety Report 7488174-X (Version None)
Quarter: 2011Q2

REPORT INFORMATION
  Report Type: 
  Country: None (occurrence: None)
  Receive Date: 20110518
  Receipt Date: 20110510
  Transmission Date: 20111010
  Serious: Yes (Hospitalization)
  Sender: FDA-Public Use
  Company Number: US-AMGEN-KDC429019

PATIENT
  Age: 76 Year
  Sex: Male
  Weight: 113.64 kg

DRUGS (39)
  1. NYSTATIN [Concomitant]
     Dosage: UNK
     Route: 061
     Dates: start: 20100722, end: 20100723
  2. LANTUS [Concomitant]
     Indication: DIABETES MELLITUS
     Route: 058
     Dates: start: 20100406, end: 20100808
  3. METOPROLOL SUCCINATE [Concomitant]
     Indication: EXTRASYSTOLES
     Dosage: UNK MG, UNK
     Dates: start: 20100708, end: 20100723
  4. CEPACOL [Concomitant]
     Indication: OROPHARYNGEAL PAIN
     Dosage: UNK
     Route: 048
     Dates: start: 20100709, end: 20100710
  5. DONEPEZIL HYDROCHLORIDE [Concomitant]
     Dosage: UNK UNK, UNK
     Route: 048
  6. SENNA-MINT WAF [Concomitant]
     Indication: CONSTIPATION
     Dosage: 8.6 MG, UNK
     Route: 048
     Dates: start: 20100715, end: 20101012
  7. DOCUSATE [Concomitant]
     Route: 048
     Dates: start: 20100715
  8. SIMVASTATIN [Concomitant]
     Indication: HIGH DENSITY LIPOPROTEIN DECREASED
     Dosage: 10 MG, UNK
     Route: 048
     Dates: start: 20100724
  9. LISINOPRIL [Concomitant]
     Indication: HYPERTENSION
     Dosage: 10 MG, UNK
     Route: 048
     Dates: start: 20100413, end: 20100714
  10. MUCINEX [Concomitant]
     Route: 048
     Dates: start: 20100412, end: 20100621
  11. ALBUTEROL [Concomitant]
     Indication: CHRONIC OBSTRUCTIVE PULMONARY DISEASE
     Route: 055
     Dates: start: 20100413, end: 20100503
  12. LEVEMIR [Concomitant]
     Indication: DIABETES MELLITUS
     Dosage: UNK
     Route: 058
     Dates: start: 20100518, end: 20100621
  13. LOVENOX [Concomitant]
     Route: 058
     Dates: start: 20100624, end: 20100625
  14. DENOSUMAB [Suspect]
     Indication: BONE LOSS
     Dosage: 60 MG, Q6MO
     Route: 058
     Dates: start: 20091013, end: 20100504
  15. DILAUDID [Concomitant]
     Route: 042
     Dates: start: 20100714, end: 20100715
  16. NOVOLIN R [Concomitant]
     Indication: DIABETES MELLITUS
     Route: 058
     Dates: start: 20100626, end: 20100715
  17. METFORMIN HCL [Concomitant]
     Indication: DIABETES MELLITUS
     Dosage: 500 MG, BID
     Route: 048
     Dates: start: 20100320
  18. WARFARIN SODIUM [Concomitant]
     Indication: THROMBOSIS
     Dosage: UNK MG, UNK
     Route: 048
     Dates: start: 20100519, end: 20100730
  19. AUGMENTIN [Concomitant]
     Route: 048
     Dates: start: 20100524, end: 20100606
  20. NOVOLIN 70/30 [Concomitant]
     Indication: DIABETES MELLITUS
     Dosage: UNK
     Route: 058
     Dates: start: 20100519, end: 20100520
  21. LIPITOR [Concomitant]
     Indication: HIGH DENSITY LIPOPROTEIN DECREASED
     Route: 048
     Dates: start: 20100408, end: 20100626
  22. PREDNISONE [Concomitant]
     Indication: CHRONIC OBSTRUCTIVE PULMONARY DISEASE
  23. HEPARIN [Concomitant]
     Indication: THROMBOSIS
     Dates: start: 20100518, end: 20100723
  24. LEVAQUIN [Concomitant]
     Route: 048
     Dates: start: 20100429, end: 20100505
  25. MORPHINE [Concomitant]
     Route: 042
     Dates: start: 20100621, end: 20100626
  26. OMEPRAZOLE [Concomitant]
     Dosage: 40 MG, UNK
     Route: 048
     Dates: start: 20100519, end: 20100730
  27. VENTOLIN [Concomitant]
     Indication: DYSPNOEA
     Route: 055
     Dates: start: 20100515
  28. PREDNISONE [Concomitant]
     Indication: DYSPNOEA
     Route: 048
     Dates: start: 20100501, end: 20100714
  29. UNASYN [Concomitant]
     Route: 042
     Dates: start: 20100519, end: 20100523
  30. VERPAMIL HCL [Concomitant]
     Dosage: UNK UNK, UNK
     Route: 048
  31. LASIX [Concomitant]
     Indication: FLUID OVERLOAD
     Dosage: 40 MG, UNK
     Dates: start: 20100411, end: 20100826
  32. SPIRIVA [Concomitant]
     Route: 055
     Dates: start: 20100323
  33. DURICEF [Concomitant]
     Route: 048
     Dates: start: 20100501, end: 20100519
  34. BACTROBAN [Concomitant]
     Dosage: UNK
     Route: 050
     Dates: start: 20100520, end: 20100523
  35. PANTOPRAZOLE [Concomitant]
     Route: 048
     Dates: start: 20100622, end: 20100723
  36. FLUTICASONE/SALMETEROL [Concomitant]
     Dosage: UNK UNK, BID
     Route: 055
     Dates: start: 20090501
  37. HYDROCODONE BITARTRATE AND ACETAMINOPHEN [Concomitant]
     Dosage: UNK
     Route: 048
     Dates: start: 20100715, end: 20100722
  38. ASPIRIN [Concomitant]
     Dosage: UNK MG, UNK
     Route: 048
     Dates: start: 20100714, end: 20100901
  39. NEUTRA-PHOS [Concomitant]
     Route: 048
     Dates: start: 20100622, end: 20100723

REACTIONS (2)
  - POSTOPERATIVE WOUND COMPLICATION [None]
  - CELLULITIS [None]
